FAERS Safety Report 8976568 (Version 1)
Quarter: 2012Q4

REPORT INFORMATION
  Report Type: 
  Country: US (occurrence: US)
  Receive Date: 20121219
  Receipt Date: 20121219
  Transmission Date: 20130627
  Serious: No
  Sender: FDA-Public Use
  Company Number: US-AMGEN-USASP2012056523

PATIENT
  Age: 77 Year
  Sex: Female
  Weight: 70.3 kg

DRUGS (5)
  1. PROLIA [Suspect]
     Indication: OSTEOPOROSIS POSTMENOPAUSAL
     Dosage: 60 mg, q6mo
     Route: 058
     Dates: start: 20120731
  2. LORAZEPAM [Concomitant]
     Indication: ANXIETY
     Dosage: 0.5 mg, qd
     Route: 048
  3. VICODIN [Concomitant]
     Indication: PAIN
     Dosage: UNK UNK, prn
     Route: 048
  4. VITAMIN D /00107901/ [Concomitant]
     Indication: ROUTINE HEALTH MAINTENANCE
     Dosage: 2000 IU, qd
     Route: 048
     Dates: start: 2012
  5. MULTIVITAMIN                       /00097801/ [Concomitant]
     Indication: ROUTINE HEALTH MAINTENANCE
     Dosage: 1 DF, qd
     Route: 048

REACTIONS (4)
  - Oedema peripheral [Unknown]
  - Lymphoedema [Unknown]
  - Abdominal distension [Unknown]
  - Discomfort [Unknown]
